FAERS Safety Report 20751495 (Version 1)
Quarter: 2022Q2

REPORT INFORMATION
  Report Type: Spontaneous
  Country: BE (occurrence: BE)
  Receive Date: 20220426
  Receipt Date: 20220426
  Transmission Date: 20220720
  Serious: No
  Sender: FDA-Public Use
  Company Number: BE-LUPIN PHARMACEUTICALS INC.-2022-06090

PATIENT
  Age: 60 Year
  Weight: 83 kg

DRUGS (4)
  1. VORICONAZOLE [Interacting]
     Active Substance: VORICONAZOLE
     Indication: Aspergillus test
     Dosage: 480 MILLIGRAM, BID (LOADING DOSE, FOR EVERY 12 HOURS)
     Route: 042
  2. VORICONAZOLE [Interacting]
     Active Substance: VORICONAZOLE
     Dosage: 300 MILLIGRAM, BID (MAINTENANCE DOSE, FOR EVERY 12 HOURS)
     Route: 042
  3. FLUCLOXACILLIN [Interacting]
     Active Substance: FLUCLOXACILLIN
     Indication: Staphylococcal infection
     Dosage: 12 GRAM, QD
     Route: 042
  4. CASPOFUNGIN [Concomitant]
     Active Substance: CASPOFUNGIN
     Indication: Product used for unknown indication
     Dosage: 70 MILLIGRAM
     Route: 065

REACTIONS (2)
  - Drug level below therapeutic [Unknown]
  - Drug interaction [Unknown]
